FAERS Safety Report 8445666-4 (Version None)
Quarter: 2012Q2

REPORT INFORMATION
  Report Type: 
  Country: None (occurrence: None)
  Receive Date: 20120618
  Receipt Date: 20120608
  Transmission Date: 20120825
  Serious: Yes (Hospitalization)
  Sender: FDA-Public Use
  Company Number: US-JNJFOC-20120605024

PATIENT
  Sex: Female
  Weight: 61.24 kg

DRUGS (2)
  1. REMICADE [Suspect]
     Indication: RHEUMATOID ARTHRITIS
     Dosage: THERAPY INITIATED 7 TO 8 YEARS AGO
     Route: 042
  2. MOBIC [Concomitant]
     Dates: start: 20120101

REACTIONS (4)
  - BLOOD ALKALINE PHOSPHATASE INCREASED [None]
  - THYROID CANCER [None]
  - RHEUMATOID ARTHRITIS [None]
  - NASAL CONGESTION [None]
